FAERS Safety Report 7040217-3 (Version None)
Quarter: 2010Q4

REPORT INFORMATION
  Report Type: 
  Country: None (occurrence: None)
  Receive Date: 20101012
  Receipt Date: 20101006
  Transmission Date: 20110411
  Serious: Yes (Hospitalization)
  Sender: FDA-Public Use
  Company Number: JP-AMGEN-KDC443096

PATIENT
  Age: 74 Year
  Sex: Male
  Weight: 62 kg

DRUGS (14)
  1. VECTIBIX [Suspect]
     Indication: COLORECTAL CANCER
     Route: 041
     Dates: start: 20100729, end: 20100909
  2. LASIX [Concomitant]
     Route: 042
  3. LASIX [Concomitant]
     Route: 048
  4. DUROTEP MT PATCH [Concomitant]
     Route: 062
  5. MECOBALAMIN [Concomitant]
     Route: 048
  6. GASMOTIN [Concomitant]
     Route: 048
  7. GASTER D [Concomitant]
     Route: 048
  8. MUCOSTA [Concomitant]
     Route: 048
  9. NIKORANMART [Concomitant]
     Route: 048
  10. NORVASC [Concomitant]
     Route: 048
  11. DIOVAN [Concomitant]
     Route: 048
  12. ASPIRIN [Concomitant]
     Route: 048
  13. PLAVIX [Concomitant]
     Route: 048
  14. LIVALO [Concomitant]
     Route: 048

REACTIONS (4)
  - CHILLS [None]
  - DERMATITIS [None]
  - PARONYCHIA [None]
  - TREMOR [None]
